FAERS Safety Report 7997664-2 (Version None)
Quarter: 2011Q4

REPORT INFORMATION
  Report Type: 
  Country: None (occurrence: None)
  Receive Date: 20111221
  Receipt Date: 20111213
  Transmission Date: 20120403
  Serious: Yes (Hospitalization, Other)
  Sender: FDA-Public Use
  Company Number: US-JNJFOC-20111205978

PATIENT
  Age: 58 Year
  Sex: Male

DRUGS (10)
  1. ZOLPIDEM [Concomitant]
     Indication: INSOMNIA
     Route: 065
  2. CELECOXIB [Suspect]
     Indication: PAIN
     Route: 048
  3. HALOPERIDOL [Suspect]
     Indication: ANXIETY
     Route: 065
  4. FENTANYL [Suspect]
     Route: 062
  5. CITALOPRAM [Suspect]
     Indication: DEPRESSION
     Route: 065
  6. MIRTAZAPINE [Suspect]
     Indication: DEPRESSION
     Route: 065
  7. OXYCODONE/ACETAMINOPHEN [Suspect]
     Indication: PAIN
     Dosage: 5/325 MG
     Route: 048
  8. DOXAZOSIN MESYLATE [Concomitant]
     Indication: BENIGN PROSTATIC HYPERPLASIA
     Route: 065
  9. FENTANYL [Suspect]
     Indication: PAIN
     Route: 062
  10. HALOPERIDOL [Suspect]
     Indication: AGITATION
     Route: 065

REACTIONS (3)
  - TREATMENT NONCOMPLIANCE [None]
  - SEROTONIN SYNDROME [None]
  - DRUG EFFECT DECREASED [None]
